FAERS Safety Report 25419240 (Version 3)
Quarter: 2025Q2

REPORT INFORMATION
  Report Type: Spontaneous
  Country: JP (occurrence: JP)
  Receive Date: 20250610
  Receipt Date: 20250626
  Transmission Date: 20250717
  Serious: Yes (Life-Threatening, Hospitalization)
  Sender: EISAI
  Company Number: JP-Eisai-202502908_LEN-HCC_P_1

PATIENT
  Age: 63 Year
  Sex: Male

DRUGS (1)
  1. LENVIMA [Suspect]
     Active Substance: LENVATINIB
     Indication: Hepatocellular carcinoma
     Dosage: DOSE AND FREQUENCY UNKNOWN
     Dates: start: 20230605, end: 20250530

REACTIONS (3)
  - Osteonecrosis [Not Recovered/Not Resolved]
  - Pneumocephalus [Unknown]
  - Meningitis [Unknown]

NARRATIVE: CASE EVENT DATE: 20250501
